FAERS Safety Report 25454045 (Version 2)
Quarter: 2025Q4

REPORT INFORMATION
  Report Type: Report from Study
  Country: CA (occurrence: CA)
  Receive Date: 20250619
  Receipt Date: 20251203
  Transmission Date: 20260117
  Serious: Yes (Hospitalization, Other)
  Sender: Alvotech
  Company Number: CA-JAMP PHARMA CORPORATION-2025-JAM-CA-00130

PATIENT
  Age: 39 Year
  Sex: Male

DRUGS (1)
  1. SIMLANDI [Suspect]
     Active Substance: ADALIMUMAB-RYVK
     Indication: Hidradenitis
     Dosage: 40 MILLIGRAM, WEEKLY
     Route: 058
     Dates: start: 20241217

REACTIONS (7)
  - Pneumonia [Unknown]
  - Infection [Unknown]
  - Respiratory disorder [Unknown]
  - Lower respiratory tract infection [Recovering/Resolving]
  - Injection site discharge [Unknown]
  - Nodule [Unknown]
  - Intentional dose omission [Unknown]
